FAERS Safety Report 9689259 (Version 3)
Quarter: 2014Q1

REPORT INFORMATION
  Report Type: Report from Study
  Country: CA (occurrence: CA)
  Receive Date: 20131114
  Receipt Date: 20140124
  Transmission Date: 20141002
  Serious: Yes (Hospitalization)
  Sender: FDA-Public Use
  Company Number: CA-ABBVIE-13P-028-1129789-00

PATIENT
  Age: 77 Year
  Sex: Male
  Weight: 83.99 kg

DRUGS (1)
  1. LUPRON DEPOT [Suspect]
     Indication: PROSTATE CANCER
     Dates: start: 2011

REACTIONS (5)
  - Dizziness [Unknown]
  - Fall [Unknown]
  - Spinal column injury [Unknown]
  - Cerebrovascular accident [Unknown]
  - Confusional state [Not Recovered/Not Resolved]
